FAERS Safety Report 20049623 (Version 1)
Quarter: 2021Q4

REPORT INFORMATION
  Report Type: Spontaneous
  Country: JP (occurrence: JP)
  Receive Date: 20211109
  Receipt Date: 20211109
  Transmission Date: 20220303
  Serious: Yes (Other)
  Sender: FDA-Public Use
  Company Number: JP-EAGLE PHARMACEUTICALS, INC.-JP-2021EAG000248

PATIENT
  Age: 74 Year
  Sex: Male

DRUGS (9)
  1. BENDAMUSTINE HYDROCHLORIDE [Suspect]
     Active Substance: BENDAMUSTINE HYDROCHLORIDE
     Indication: Diffuse large B-cell lymphoma refractory
     Dosage: 120 MG/M2, (CYCLE 1 BR THERAPY)
     Route: 041
  2. BENDAMUSTINE HYDROCHLORIDE [Suspect]
     Active Substance: BENDAMUSTINE HYDROCHLORIDE
     Dosage: 90 MG/M2, (CYCLE 1 PBR THERAPY)
  3. BENDAMUSTINE HYDROCHLORIDE [Suspect]
     Active Substance: BENDAMUSTINE HYDROCHLORIDE
     Dosage: 90 MG/M2, (CYCLE 2 PBR THERAPY)
  4. BENDAMUSTINE HYDROCHLORIDE [Suspect]
     Active Substance: BENDAMUSTINE HYDROCHLORIDE
     Dosage: UNK
  5. RITUXAN [Concomitant]
     Active Substance: RITUXIMAB
     Indication: Diffuse large B-cell lymphoma recurrent
     Dosage: UNK, (CYCLE 1 BR THERAPY)
     Route: 041
  6. RITUXAN [Concomitant]
     Active Substance: RITUXIMAB
     Dosage: UNK, (CYCLE 1 PBR THERAPY)
     Route: 041
  7. RITUXAN [Concomitant]
     Active Substance: RITUXIMAB
     Dosage: UNK, (CYCLE 2 PBR THERAPY)
     Route: 041
  8. POLATUZUMAB VEDOTIN [Concomitant]
     Active Substance: POLATUZUMAB VEDOTIN
     Indication: Diffuse large B-cell lymphoma refractory
     Dosage: UNK (CYCLE 1 PBR THERAPY)
     Route: 041
  9. POLATUZUMAB VEDOTIN [Concomitant]
     Active Substance: POLATUZUMAB VEDOTIN
     Dosage: UNK (CYCLE 2 PBR THERAPY)
     Route: 041

REACTIONS (4)
  - Hypogammaglobulinaemia [Unknown]
  - Cytopenia [Unknown]
  - Cytomegalovirus viraemia [Unknown]
  - Lymphocyte count decreased [Unknown]
